FAERS Safety Report 13464091 (Version 1)
Quarter: 2017Q2

REPORT INFORMATION
  Report Type: Spontaneous
  Country: US (occurrence: US)
  Receive Date: 20170420
  Receipt Date: 20170420
  Transmission Date: 20170830
  Serious: Yes (Other)
  Sender: FDA-Public Use
  Company Number: US-ROCHE-621406

PATIENT
  Age: 14 Year
  Sex: Male
  Weight: 71.7 kg

DRUGS (1)
  1. ACCUTANE [Suspect]
     Active Substance: ISOTRETINOIN
     Indication: ACNE
     Dosage: 40 MG IN MORNING; 20 MG AT NIGHT; STRENGTH: 40 MG AND 20 MG
     Route: 048
     Dates: start: 20001124, end: 20010413

REACTIONS (7)
  - Pancreatitis [Unknown]
  - Dry skin [Unknown]
  - Colitis ulcerative [Unknown]
  - Lip dry [Unknown]
  - Epistaxis [Unknown]
  - Blood triglycerides increased [Unknown]
  - Gastrointestinal injury [Unknown]

NARRATIVE: CASE EVENT DATE: 200012
